FAERS Safety Report 13938711 (Version 2)
Quarter: 2017Q3

REPORT INFORMATION
  Report Type: Spontaneous
  Country: IT (occurrence: IT)
  Receive Date: 20170906
  Receipt Date: 20170913
  Transmission Date: 20171127
  Serious: Yes (Hospitalization, Other)
  Sender: FDA-Public Use
  Company Number: IT-MACLEODS PHARMACEUTICALS US LTD-MAC2017005807

PATIENT

DRUGS (5)
  1. CODEINE 30 MG/ACETAMINOPHEN 500 MG [Interacting]
     Active Substance: ACETAMINOPHEN\CODEINE PHOSPHATE
     Indication: MIGRAINE
     Dosage: 30/500MG
     Route: 065
     Dates: start: 20151121
  2. VENLAFAXINE [Interacting]
     Active Substance: VENLAFAXINE HYDROCHLORIDE
     Indication: MIGRAINE
     Dosage: 150 MG IN THE MORNING AND 75 MG IN AFTERNOON
     Route: 065
     Dates: start: 20151121
  3. DIAZEPAM. [Concomitant]
     Active Substance: DIAZEPAM
     Indication: MIGRAINE
     Dosage: 5 MG, TID (RECOMMENDED DOSE)
     Route: 065
  4. RIZATRIPTAN. [Suspect]
     Active Substance: RIZATRIPTAN
     Indication: MIGRAINE
     Dosage: 10 MG, AS NECESSARY (AS NEEDED USE)
     Route: 065
  5. DIAZEPAM. [Concomitant]
     Active Substance: DIAZEPAM
     Indication: AGITATION
     Dosage: 5 MG, BID
     Route: 048

REACTIONS (18)
  - Nervousness [Recovering/Resolving]
  - Pupillary reflex impaired [Recovering/Resolving]
  - Anxiety [Recovering/Resolving]
  - Agitation [Recovering/Resolving]
  - Confusional state [Recovering/Resolving]
  - Ataxia [Recovering/Resolving]
  - Prescription drug used without a prescription [Recovering/Resolving]
  - Mania [Recovering/Resolving]
  - Nausea [Recovering/Resolving]
  - Coordination abnormal [Recovering/Resolving]
  - Hypervigilance [Recovering/Resolving]
  - Hyperreflexia [Recovering/Resolving]
  - Tremor [Recovering/Resolving]
  - Drug interaction [Recovering/Resolving]
  - Serotonin syndrome [Recovering/Resolving]
  - Irritability [Recovering/Resolving]
  - Hyperhidrosis [Recovering/Resolving]
  - Miosis [Recovering/Resolving]

NARRATIVE: CASE EVENT DATE: 201511
